FAERS Safety Report 6215730-9 (Version None)
Quarter: 2009Q2

REPORT INFORMATION
  Report Type: 
  Country: None (occurrence: None)
  Receive Date: 20090605
  Receipt Date: 20090601
  Transmission Date: 20091009
  Serious: Yes (Hospitalization)
  Sender: FDA-Public Use
  Company Number: JP-SANOFI-SYNTHELABO-A01200905736

PATIENT
  Sex: Male

DRUGS (5)
  1. LEVOLEUCOVORIN CALCIUM [Concomitant]
     Route: 041
     Dates: start: 20090428, end: 20090429
  2. ELPLAT [Suspect]
     Indication: RECTAL CANCER METASTATIC
     Route: 041
     Dates: start: 20090428, end: 20090428
  3. FLUOROURACIL [Concomitant]
     Route: 040
     Dates: start: 20090428, end: 20090428
  4. FLUOROURACIL [Concomitant]
     Route: 041
     Dates: start: 20090428, end: 20090428
  5. AVASTIN [Suspect]
     Indication: RECTAL CANCER METASTATIC
     Route: 042
     Dates: start: 20080916, end: 20090428

REACTIONS (2)
  - ANOREXIA [None]
  - URINARY RETENTION [None]
